FAERS Safety Report 9202061 (Version 1)
Quarter: 2013Q1

REPORT INFORMATION
  Report Type: Spontaneous
  Country: US (occurrence: None)
  Receive Date: 20130328
  Receipt Date: 20130328
  Transmission Date: 20140127
  Serious: Yes (Hospitalization)
  Sender: FDA-Public Use
  Company Number: 2013AP003859

PATIENT
  Age: 60 Year
  Sex: Male

DRUGS (3)
  1. TRAZODONE HYDROCHLORIDE [Suspect]
     Indication: DEPRESSION
     Dosage: HS
  2. ESCITALOPRAM OXALATE [Suspect]
     Indication: DEPRESSION
     Route: 048
  3. METHYLTHIONINIUM CHLORIDE [Suspect]
     Indication: VASOPLEGIA SYNDROME

REACTIONS (1)
  - Serotonin syndrome [None]
